FAERS Safety Report 15938305 (Version 1)
Quarter: 2019Q1

REPORT INFORMATION
  Report Type: Report from Study
  Country: US (occurrence: US)
  Receive Date: 20190208
  Receipt Date: 20190208
  Transmission Date: 20190417
  Serious: Yes (Other)
  Sender: FDA-Public Use
  Company Number: US-JNJFOC-20190114335

PATIENT
  Sex: Female

DRUGS (10)
  1. NAPROSYN [Concomitant]
     Active Substance: NAPROXEN
  2. SYNTHROID [Concomitant]
     Active Substance: LEVOTHYROXINE SODIUM
  3. IMBRUVICA [Suspect]
     Active Substance: IBRUTINIB
     Indication: CHRONIC LYMPHOCYTIC LEUKAEMIA
     Dosage: 420 MG, QD
     Route: 048
     Dates: start: 20180326
  4. ESTRACE [Concomitant]
     Active Substance: ESTRADIOL
  5. TEGRETOL [Concomitant]
     Active Substance: CARBAMAZEPINE
  6. DOCUSATE PLUS SENNA [Concomitant]
     Active Substance: DOCUSATE SODIUM\SENNOSIDES A AND B
  7. MIRALAX [Concomitant]
     Active Substance: POLYETHYLENE GLYCOL 3350
  8. CHONDROITIN SULFATE W/GLUCOSAMINE [Concomitant]
  9. SALMO SALAR OIL [Concomitant]
     Active Substance: ATLANTIC SALMON OIL
  10. PHENOBARBITAL. [Concomitant]
     Active Substance: PHENOBARBITAL

REACTIONS (1)
  - Food poisoning [Unknown]
